FAERS Safety Report 5093500-5 (Version None)
Quarter: 2006Q3

REPORT INFORMATION
  Report Type: 
  Country: None (occurrence: None)
  Receive Date: 20060829
  Receipt Date: 20060816
  Transmission Date: 20061208
  Serious: Yes (Other)
  Sender: FDA-Public Use
  Company Number: 2006092801

PATIENT
  Sex: Female
  Weight: 52.1637 kg

DRUGS (4)
  1. NEURONTIN [Suspect]
     Indication: HEADACHE
  2. NARDIL [Suspect]
     Indication: HEADACHE
     Dosage: (15 MG,), ORAL
     Route: 048
     Dates: start: 20040801
  3. TOPAMAX [Suspect]
     Indication: HEADACHE
  4. ALL OTHER THERAPEUTIC PRODUCTS (ALL OTHER THERAPEUTIC PRODUCTS) [Suspect]
     Indication: HEADACHE

REACTIONS (7)
  - AGGRESSION [None]
  - ANGER [None]
  - DRUG INEFFECTIVE [None]
  - HOSTILITY [None]
  - MYALGIA [None]
  - PARANOIA [None]
  - WEIGHT INCREASED [None]
